FAERS Safety Report 20544469 (Version 2)
Quarter: 2022Q1

REPORT INFORMATION
  Report Type: Spontaneous
  Country: AR (occurrence: AR)
  Receive Date: 20220303
  Receipt Date: 20220316
  Transmission Date: 20220423
  Serious: Yes (Other)
  Sender: FDA-Public Use
  Company Number: AR-ORGANON-O2202ARG002175

PATIENT
  Age: 83 Year
  Sex: Female

DRUGS (3)
  1. BETAMETHASONE DIPROPIONATE\CLOTRIMAZOLE\GENTAMICIN SULFATE [Suspect]
     Active Substance: BETAMETHASONE DIPROPIONATE\CLOTRIMAZOLE\GENTAMICIN SULFATE
     Indication: Vulvitis
     Dosage: UNK
     Route: 061
     Dates: start: 1982
  2. BETAMETHASONE DIPROPIONATE\CLOTRIMAZOLE\GENTAMICIN SULFATE [Suspect]
     Active Substance: BETAMETHASONE DIPROPIONATE\CLOTRIMAZOLE\GENTAMICIN SULFATE
     Indication: Vulvovaginal pruritus
  3. BETAMETHASONE DIPROPIONATE\CLOTRIMAZOLE\GENTAMICIN SULFATE [Suspect]
     Active Substance: BETAMETHASONE DIPROPIONATE\CLOTRIMAZOLE\GENTAMICIN SULFATE
     Indication: Vulvovaginal burning sensation

REACTIONS (25)
  - Neuropathy peripheral [Unknown]
  - Pituitary tumour benign [Recovered/Resolved]
  - Bladder mass [Unknown]
  - Chromaturia [Unknown]
  - Amnesia [Unknown]
  - Adrenal disorder [Unknown]
  - Pruritus genital [Unknown]
  - Cortisol decreased [Recovered/Resolved]
  - Dysuria [Unknown]
  - Pollakiuria [Unknown]
  - Treatment noncompliance [Unknown]
  - Incontinence [Unknown]
  - Fall [Unknown]
  - Meniscus injury [Unknown]
  - Hypoacusis [Unknown]
  - Tinnitus [Unknown]
  - Arteriosclerosis [Unknown]
  - Muscle atrophy [Unknown]
  - Peripheral swelling [Unknown]
  - Vaginal mucosal blistering [Unknown]
  - Urinary tract infection [Unknown]
  - Incorrect product administration duration [Unknown]
  - Contraindicated product administered [Unknown]
  - Product use in unapproved indication [Unknown]
  - Product prescribing issue [Unknown]

NARRATIVE: CASE EVENT DATE: 19820101
